FAERS Safety Report 18262423 (Version 2)
Quarter: 2024Q1

REPORT INFORMATION
  Report Type: Spontaneous
  Country: CA (occurrence: None)
  Receive Date: 20200914
  Receipt Date: 20240213
  Transmission Date: 20240410
  Serious: Yes (Other)
  Sender: FDA-Public Use
  Company Number: 2020SF15776

PATIENT
  Age: 38 Year
  Sex: Male

DRUGS (13)
  1. BENRALIZUMAB [Suspect]
     Active Substance: BENRALIZUMAB
     Indication: Product used for unknown indication
     Dosage: 30.0MG UNKNOWN
     Route: 058
  2. INFLIXIMAB [Suspect]
     Active Substance: INFLIXIMAB
     Indication: Crohn^s disease
     Dosage: 500 MG, EVERY 2, 6 WEEKS, THEN EVERY 8 WEEKS500.0MG UNKNOWN
     Route: 042
     Dates: start: 20180604, end: 2018
  3. INFLIXIMAB [Suspect]
     Active Substance: INFLIXIMAB
     Indication: Crohn^s disease
     Dosage: 500 MG, EVERY 2, 6 WEEKS, THEN EVERY 8 WEEKS500.0MG UNKNOWN
     Route: 042
     Dates: start: 20190629
  4. INFLIXIMAB [Suspect]
     Active Substance: INFLIXIMAB
     Indication: Crohn^s disease
     Dosage: 500 MG, EVERY 2, 6 WEEKS, THEN EVERY 8 WEEKS500.0MG UNKNOWN
     Route: 042
     Dates: start: 20180710
  5. INFLIXIMAB [Suspect]
     Active Substance: INFLIXIMAB
     Indication: Crohn^s disease
     Dosage: UNKNOWN
     Route: 042
     Dates: start: 20180831
  6. INFLIXIMAB [Suspect]
     Active Substance: INFLIXIMAB
     Indication: Crohn^s disease
     Dosage: UNKNOWN
     Route: 042
     Dates: start: 20181109
  7. INFLIXIMAB [Suspect]
     Active Substance: INFLIXIMAB
     Indication: Crohn^s disease
     Dosage: UNKNOWN
     Route: 042
     Dates: start: 20190126
  8. INFLIXIMAB [Suspect]
     Active Substance: INFLIXIMAB
     Indication: Crohn^s disease
     Dosage: 500 MG, EVERY 2, 6 WEEKS, THEN EVERY 8 WEEKS500.0MG UNKNOWN
     Route: 042
     Dates: start: 20190225
  9. INFLIXIMAB [Suspect]
     Active Substance: INFLIXIMAB
     Indication: Crohn^s disease
     Dosage: 500 MG, EVERY 2, 6 WEEKS, THEN EVERY 8 WEEKS500.0MG UNKNOWN
     Route: 042
     Dates: start: 20190409
  10. ACETAMINOPHEN [Concomitant]
     Active Substance: ACETAMINOPHEN
     Indication: Premedication
     Dosage: 650.0MG UNKNOWN
     Route: 048
     Dates: start: 20190225
  11. DIPHENHYDRAMINE [Concomitant]
     Active Substance: DIPHENHYDRAMINE
     Indication: Premedication
     Dosage: 50.0MG UNKNOWN
     Route: 048
     Dates: start: 20190225
  12. HYDROCORTISONE [Concomitant]
     Active Substance: HYDROCORTISONE
     Indication: Premedication
     Dosage: 100.0MG UNKNOWN
     Route: 042
     Dates: start: 20190225
  13. IMURAN [Concomitant]
     Active Substance: AZATHIOPRINE
     Dosage: 150.0MG UNKNOWN

REACTIONS (8)
  - Blood pressure fluctuation [Unknown]
  - Condition aggravated [Not Recovered/Not Resolved]
  - Hernia [Unknown]
  - Nasal congestion [Not Recovered/Not Resolved]
  - Oropharyngeal pain [Recovering/Resolving]
  - Sputum discoloured [Recovering/Resolving]
  - Product use issue [Unknown]
  - Wrong product administered [Unknown]

NARRATIVE: CASE EVENT DATE: 20180101
